FAERS Safety Report 9425231 (Version 1)
Quarter: 2013Q3

REPORT INFORMATION
  Report Type: Spontaneous
  Country: US (occurrence: US)
  Receive Date: 20130729
  Receipt Date: 20130729
  Transmission Date: 20140515
  Serious: No
  Sender: FDA-Public Use
  Company Number: US-PFIZER INC-2013217117

PATIENT
  Age: 61 Year
  Sex: Female

DRUGS (1)
  1. PREMARIN [Suspect]
     Dosage: UNK
     Route: 067

REACTIONS (5)
  - Abdominal distension [Unknown]
  - Adnexa uteri pain [Unknown]
  - Back pain [Unknown]
  - Vulvovaginal pain [Unknown]
  - Ovarian disorder [Unknown]
